FAERS Safety Report 5406594-1 (Version None)
Quarter: 2007Q3

REPORT INFORMATION
  Report Type: 
  Country: None (occurrence: None)
  Receive Date: 20070806
  Receipt Date: 20070725
  Transmission Date: 20080115
  Serious: Yes (Death)
  Sender: FDA-Public Use
  Company Number: JP-PFIZER INC-2007058677

PATIENT
  Sex: Male

DRUGS (3)
  1. GABAPEN [Suspect]
     Indication: CONVULSION
     Dosage: DAILY DOSE:1200MG
     Route: 048
  2. TEGRETOL [Concomitant]
     Route: 048
  3. RIZE [Concomitant]
     Route: 048

REACTIONS (1)
  - DEATH [None]
